FAERS Safety Report 6589716-9 (Version None)
Quarter: 2010Q1

REPORT INFORMATION
  Report Type: 
  Country: None (occurrence: None)
  Receive Date: 20100212
  Receipt Date: 20100209
  Transmission Date: 20100710
  Serious: Yes (Hospitalization)
  Sender: FDA-Public Use
  Company Number: 8051125

PATIENT
  Age: 28 Year
  Sex: Female

DRUGS (7)
  1. KEPPRA [Suspect]
     Indication: CONVULSION
     Dosage: 2000 MG, 3000 MG, 4000 MG, 5000 MG, 6000 MG
     Dates: end: 20081121
  2. KEPPRA [Suspect]
     Indication: CONVULSION
     Dosage: 2000 MG, 3000 MG, 4000 MG, 5000 MG, 6000 MG
     Dates: start: 20081122, end: 20090609
  3. KEPPRA [Suspect]
     Indication: CONVULSION
     Dosage: 2000 MG, 3000 MG, 4000 MG, 5000 MG, 6000 MG
     Dates: start: 20090701, end: 20090701
  4. KEPPRA [Suspect]
     Indication: CONVULSION
     Dosage: 2000 MG, 3000 MG, 4000 MG, 5000 MG, 6000 MG
     Dates: start: 20090701, end: 20090713
  5. KEPPRA [Suspect]
     Indication: CONVULSION
     Dosage: 2000 MG, 3000 MG, 4000 MG, 5000 MG, 6000 MG
     Dates: start: 20090713
  6. VITAMIN TAB [Concomitant]
  7. FOLIC ACID [Concomitant]

REACTIONS (7)
  - CAESAREAN SECTION [None]
  - COMPLEX PARTIAL SEIZURES [None]
  - CONDITION AGGRAVATED [None]
  - DRUG EXPOSURE DURING PREGNANCY [None]
  - GESTATIONAL DIABETES [None]
  - PREGNANCY [None]
  - THROMBOCYTOPENIA [None]
